FAERS Safety Report 10920249 (Version 1)
Quarter: 2015Q1

REPORT INFORMATION
  Report Type: Spontaneous
  Country: US (occurrence: US)
  Receive Date: 20150317
  Receipt Date: 20150317
  Transmission Date: 20150721
  Serious: No
  Sender: FDA-Public Use
  Company Number: US-DRREDDYS-USA/USA/15/0045499

PATIENT
  Age: 77 Year
  Sex: Female
  Weight: 58.9 kg

DRUGS (2)
  1. ZOLEDRONIC ACID. [Suspect]
     Active Substance: ZOLEDRONIC ACID
     Indication: RADIOTHERAPY
     Route: 042
     Dates: start: 20150114
  2. ZOLEDRONIC ACID. [Suspect]
     Active Substance: ZOLEDRONIC ACID
     Indication: VULVAL CANCER

REACTIONS (7)
  - Pyrexia [Recovering/Resolving]
  - Fatigue [Recovering/Resolving]
  - Cyst [Recovering/Resolving]
  - Productive cough [Recovering/Resolving]
  - Nausea [Recovering/Resolving]
  - Myalgia [Recovering/Resolving]
  - Condition aggravated [Recovering/Resolving]

NARRATIVE: CASE EVENT DATE: 20150115
